FAERS Safety Report 16407365 (Version 3)
Quarter: 2019Q2

REPORT INFORMATION
  Report Type: Spontaneous
  Country: US (occurrence: US)
  Receive Date: 20190608
  Receipt Date: 20190626
  Transmission Date: 20190711
  Serious: Yes (Other)
  Sender: FDA-Public Use
  Company Number: US-UNITED THERAPEUTICS-UNT-2019-009783

PATIENT
  Age: 79 Year
  Sex: Female
  Weight: 83.45 kg

DRUGS (2)
  1. OPSUMIT [Concomitant]
     Active Substance: MACITENTAN
     Indication: PRODUCT USED FOR UNKNOWN INDICATION
     Dosage: UNK
     Route: 065
  2. TYVASO [Suspect]
     Active Substance: TREPROSTINIL
     Indication: PULMONARY ARTERIAL HYPERTENSION
     Dosage: 18-54 ?G, QID
     Dates: start: 20150813

REACTIONS (4)
  - Dizziness [Unknown]
  - Myocardial infarction [Unknown]
  - Nausea [Unknown]
  - Feeling drunk [Unknown]

NARRATIVE: CASE EVENT DATE: 201905
